FAERS Safety Report 5471105-1 (Version None)
Quarter: 2007Q3

REPORT INFORMATION
  Report Type: 
  Country: None (occurrence: None)
  Receive Date: 20070925
  Receipt Date: 20070910
  Transmission Date: 20080115
  Serious: Yes (Hospitalization, Other)
  Sender: FDA-Public Use
  Company Number: 2007US-09875

PATIENT
  Sex: Female

DRUGS (3)
  1. AMOXICILLIN CLAVULANATE POTASSIUM (AMOXICILLIN) TABLET [Suspect]
     Indication: EAR INFECTION
     Dosage: 500 MG, QD, ORAL; 875 MG, BID, ORAL
     Route: 048
  2. AMOXICILLIN CLAVULANATE POTASSIUM (AMOXICILLIN) TABLET [Suspect]
     Indication: SIALOADENITIS
     Dosage: 500 MG, QD, ORAL; 875 MG, BID, ORAL
     Route: 048
  3. AMOXICILLIN + CLAVULANATE POTASSIUM [Suspect]

REACTIONS (3)
  - DRUG INEFFECTIVE [None]
  - NAUSEA [None]
  - VOMITING [None]
